FAERS Safety Report 7113755-2 (Version None)
Quarter: 2010Q4

REPORT INFORMATION
  Report Type: 
  Country: None (occurrence: None)
  Receive Date: 20101119
  Receipt Date: 20101115
  Transmission Date: 20110411
  Serious: Yes (Life-Threatening, Other)
  Sender: FDA-Public Use
  Company Number: DE-ASTRAZENECA-2010SE54282

PATIENT
  Age: 22202 Day
  Sex: Female
  Weight: 73 kg

DRUGS (1)
  1. ARIMIDEX [Suspect]
     Indication: BREAST CANCER
     Route: 048
     Dates: start: 20080926, end: 20091008

REACTIONS (3)
  - ARTHRITIS [None]
  - BONE DISORDER [None]
  - MUSCULAR WEAKNESS [None]
